FAERS Safety Report 4912967-3 (Version None)
Quarter: 2006Q1

REPORT INFORMATION
  Report Type: 
  Country: None (occurrence: None)
  Receive Date: 20060210
  Receipt Date: 20060201
  Transmission Date: 20060701
  Serious: Yes (Other)
  Sender: FDA-Public Use
  Company Number: 2005-11-0250

PATIENT
  Age: 76 Year
  Sex: Male
  Weight: 81.6475 kg

DRUGS (5)
  1. PROVENTIL [Suspect]
     Indication: ASTHMA
     Dosage: 2 DOSES / DAY ORAL AER I
  2. ALBUTEROL [Suspect]
     Dosage: ORAL AER INH
     Route: 055
  3. ASPIRIN [Concomitant]
  4. TEGRETOL [Concomitant]
  5. LIPITOR [Concomitant]

REACTIONS (5)
  - DIZZINESS [None]
  - EXTRASYSTOLES [None]
  - MALAISE [None]
  - PHARMACEUTICAL PRODUCT COMPLAINT [None]
  - POOR QUALITY DRUG ADMINISTERED [None]
